FAERS Safety Report 9017193 (Version 1)
Quarter: 2013Q1

REPORT INFORMATION
  Report Type: Spontaneous
  Country: US (occurrence: US)
  Receive Date: 20130117
  Receipt Date: 20130117
  Transmission Date: 20140127
  Serious: No
  Sender: FDA-Public Use
  Company Number: US-ASTRAZENECA-2013SE01350

PATIENT
  Age: 60 Year
  Sex: Female
  Weight: 120.7 kg

DRUGS (3)
  1. SYMBICORT PMDI [Suspect]
     Indication: ASTHMA
     Dosage: 80/4.5 UG, TWO PUFFS,TWO TIMES A DAY
     Route: 055
     Dates: start: 2012
  2. NEXIUM [Suspect]
     Indication: GASTROOESOPHAGEAL REFLUX DISEASE
     Route: 048
     Dates: start: 2012
  3. SINGULAR [Concomitant]
     Indication: ASTHMA

REACTIONS (3)
  - Candida infection [Recovered/Resolved]
  - Off label use [Unknown]
  - Circumstance or information capable of leading to medication error [Unknown]
